FAERS Safety Report 7710430-8 (Version None)
Quarter: 2011Q3

REPORT INFORMATION
  Report Type: 
  Country: None (occurrence: None)
  Receive Date: 20110825
  Receipt Date: 20110811
  Transmission Date: 20111222
  Serious: Yes (Other)
  Sender: FDA-Public Use
  Company Number: CA-ELI_LILLY_AND_COMPANY-CA201108004123

PATIENT
  Age: 74 Year
  Sex: Female

DRUGS (14)
  1. METHOTREXATE [Concomitant]
  2. LOVAZA [Concomitant]
  3. FORTEO [Suspect]
     Indication: OSTEOPOROSIS
     Dosage: 20 UG, QD
     Route: 058
     Dates: start: 20101222, end: 20110808
  4. ASCORBIC ACID [Concomitant]
  5. FERROUS SULFATE TAB [Concomitant]
  6. VITAMIN D [Concomitant]
  7. BACLOFEN [Concomitant]
  8. ENBREL [Concomitant]
  9. MAGNESIUM [Concomitant]
  10. VITAMIN B COMPLEX CAP [Concomitant]
  11. RANITIDINE [Concomitant]
  12. ARTHROTEC [Concomitant]
  13. TYLENOL                                 /SCH/ [Concomitant]
  14. CALCIUM CARBONATE [Concomitant]

REACTIONS (1)
  - BREAST CANCER [None]
